FAERS Safety Report 24163974 (Version 1)
Quarter: 2024Q3

REPORT INFORMATION
  Report Type: Spontaneous
  Country: US (occurrence: US)
  Receive Date: 20240801
  Receipt Date: 20240801
  Transmission Date: 20241017
  Serious: No
  Sender: UPSHER-SMITH
  Company Number: US-UPSHER-SMITH LABORATORIES, LLC-2024USL00160

PATIENT

DRUGS (4)
  1. VIGADRONE [Suspect]
     Active Substance: VIGABATRIN
     Indication: Partial seizures
     Dosage: UNK
     Dates: start: 20220322
  2. VIGADRONE [Suspect]
     Active Substance: VIGABATRIN
     Dosage: 5 ML, 1X/DAY IN THE MORNING
  3. VIGADRONE [Suspect]
     Active Substance: VIGABATRIN
     Dosage: 15 ML, 1X/DAY IN THE AFTERNOON
  4. VIGADRONE [Suspect]
     Active Substance: VIGABATRIN
     Dosage: 20 ML, 1X/DAY IN THE EVENING

REACTIONS (1)
  - Irritability [Unknown]
